FAERS Safety Report 7943387-5 (Version None)
Quarter: 2011Q4

REPORT INFORMATION
  Report Type: 
  Country: None (occurrence: None)
  Receive Date: 20111128
  Receipt Date: 20111124
  Transmission Date: 20120403
  Serious: Yes (Other)
  Sender: FDA-Public Use
  Company Number: JP-PFIZER INC-2011273732

PATIENT
  Age: 87 Year
  Sex: Male

DRUGS (2)
  1. GLYCYRRHIZIN [Suspect]
  2. NORPACE [Suspect]
     Route: 048

REACTIONS (4)
  - TORSADE DE POINTES [None]
  - ELECTROCARDIOGRAM QT PROLONGED [None]
  - HYPOKALAEMIA [None]
  - VENTRICULAR TACHYCARDIA [None]
